FAERS Safety Report 4981879-1 (Version None)
Quarter: 2006Q2

REPORT INFORMATION
  Report Type: 
  Country: None (occurrence: None)
  Receive Date: 20060425
  Receipt Date: 20060410
  Transmission Date: 20061013
  Serious: Yes (Hospitalization)
  Sender: FDA-Public Use
  Company Number: US-BRISTOL-MYERS SQUIBB COMPANY-13341789

PATIENT
  Age: 55 Year
  Sex: Female
  Weight: 100 kg

DRUGS (2)
  1. ERBITUX [Suspect]
     Indication: CERVIX CARCINOMA
     Dosage: INIT 07-OCT-2005 AT 400 MG/M2/TOTAL DOSE ADMIN. THIS COURSE = 955 MG/INTERRUPTED X 1 WK 24-MAR-06.
     Route: 042
     Dates: start: 20060323, end: 20060323
  2. CISPLATIN [Suspect]
     Indication: CERVIX CARCINOMA
     Dosage: INIT 07-OCT-2005/TOTAL DOSE ADMIN THIS COURSE = 115 MG/INTERRUPTED X 1 WEEK ON 24-MAR-2006.
     Route: 042
     Dates: start: 20060323, end: 20060323

REACTIONS (1)
  - INFECTION [None]
